FAERS Safety Report 10248599 (Version 1)
Quarter: 2014Q2

REPORT INFORMATION
  Report Type: Spontaneous
  Country: US (occurrence: None)
  Receive Date: 20140617
  Receipt Date: 20140617
  Transmission Date: 20141212
  Serious: Yes (Hospitalization)
  Sender: FDA-Public Use
  Company Number: None

PATIENT
  Age: 66 Year
  Sex: Female
  Weight: 73 kg

DRUGS (12)
  1. ELIQUID (APIXABAN) 2.5MG BRISTOL-MYERS SQUIBB [Suspect]
     Indication: ATRIAL FIBRILLATION
     Route: 048
     Dates: start: 20140425
  2. ACYCLOVIR [Concomitant]
  3. ALLOPURINOL [Concomitant]
  4. AMIODARONE [Concomitant]
  5. APIXABAN [Concomitant]
  6. FLUOXETINE [Concomitant]
  7. LORAZAPAM [Concomitant]
  8. METHADONE [Concomitant]
  9. MULTIVITAMIN [Concomitant]
  10. OMEGA-3 FATTY ACID [Concomitant]
  11. PROPANOLOL [Concomitant]
  12. RENEGEL [Concomitant]

REACTIONS (2)
  - Vascular pseudoaneurysm [None]
  - Haematoma [None]
